FAERS Safety Report 8087166-X (Version None)
Quarter: 2012Q1

REPORT INFORMATION
  Report Type: 
  Country: None (occurrence: None)
  Receive Date: 20120128
  Receipt Date: 20110411
  Transmission Date: 20120608
  Serious: No
  Sender: FDA-Public Use
  Company Number: US-ABBOTT-11P-163-0719430-00

PATIENT
  Sex: Female
  Weight: 74.456 kg

DRUGS (8)
  1. NAPROXEN (ALEVE) [Concomitant]
     Indication: PAIN
     Dosage: PRN
  2. METFFORMIN HYDROCHLORIDE [Concomitant]
     Indication: TYPE 2 DIABETES MELLITUS
  3. HUMIRA [Suspect]
     Indication: RHEUMATOID ARTHRITIS
     Route: 058
  4. REVATIO [Concomitant]
     Indication: PULMONARY ARTERIAL HYPERTENSION
  5. METHOTREXATE [Concomitant]
     Indication: RHEUMATOID ARTHRITIS
  6. SINGULAIR [Concomitant]
     Indication: HYPERSENSITIVITY
  7. TRACLEER [Concomitant]
     Indication: PULMONARY ARTERIAL HYPERTENSION
  8. FOLIC ACID [Concomitant]
     Indication: PRODUCT USED FOR UNKNOWN INDICATION

REACTIONS (4)
  - NASAL CONGESTION [None]
  - INFLUENZA [None]
  - COUGH [None]
  - FATIGUE [None]
